FAERS Safety Report 8824638 (Version 1)
Quarter: 2012Q4

REPORT INFORMATION
  Report Type: 
  Country: US (occurrence: US)
  Receive Date: 20121004
  Receipt Date: 20121004
  Transmission Date: 20130627
  Serious: Yes (Other)
  Sender: FDA-Public Use
  Company Number: PHEH2012US014443

PATIENT
  Age: 21 Year
  Sex: Male

DRUGS (5)
  1. AFINITOR [Suspect]
     Indication: TUBEROUS SCLEROSIS
     Dosage: 7.5 mg, daily
     Route: 048
     Dates: start: 20110719
  2. CELEXA [Concomitant]
  3. XANAX [Concomitant]
  4. BACTRIM [Concomitant]
  5. ALLEGRA [Concomitant]

REACTIONS (3)
  - Renal neoplasm [Unknown]
  - Blood pressure increased [Unknown]
  - Oral pain [Unknown]
